FAERS Safety Report 8889368 (Version 1)
Quarter: 2012Q4

REPORT INFORMATION
  Report Type: Spontaneous
  Country: US (occurrence: None)
  Receive Date: 20121101
  Receipt Date: 20121101
  Transmission Date: 20130627
  Serious: Yes (Other)
  Sender: FDA-Public Use
  Company Number: None

PATIENT
  Age: 28 Year
  Sex: Female
  Weight: 74.84 kg

DRUGS (1)
  1. MIRENA IUD [Suspect]
     Indication: BIRTH CONTROL

REACTIONS (12)
  - Abdominal pain upper [None]
  - Pain [None]
  - Cholelithiasis [None]
  - Dizziness [None]
  - Dyspepsia [None]
  - Insomnia [None]
  - Scar [None]
  - Feeling abnormal [None]
  - Female sexual dysfunction [None]
  - Flatulence [None]
  - Back pain [None]
  - Breast tenderness [None]
